FAERS Safety Report 13619107 (Version 1)
Quarter: 2017Q2

REPORT INFORMATION
  Report Type: Spontaneous
  Country: US (occurrence: US)
  Receive Date: 20170606
  Receipt Date: 20170606
  Transmission Date: 20170830
  Serious: No
  Sender: FDA-Public Use
  Company Number: US-AMGEN-USASP2016104405

PATIENT
  Age: 12 Year
  Sex: Male
  Weight: 56.24 kg

DRUGS (1)
  1. EPOGEN [Suspect]
     Active Substance: ERYTHROPOIETIN
     Indication: CHRONIC KIDNEY DISEASE
     Dosage: 3000 UNIT, 2 TIMES/WK (TWICE WEEKLY)
     Route: 065

REACTIONS (1)
  - Incorrect product storage [Unknown]
